FAERS Safety Report 8707660 (Version 2)
Quarter: 2013Q4

REPORT INFORMATION
  Report Type: Spontaneous
  Country: US (occurrence: US)
  Receive Date: 20120806
  Receipt Date: 20131101
  Transmission Date: 20140711
  Serious: No
  Sender: FDA-Public Use
  Company Number: US-009507513-1207USA012286

PATIENT
  Age: 77 Year
  Sex: Male

DRUGS (8)
  1. PRINIVIL [Suspect]
     Route: 048
  2. SYMBICORT [Suspect]
     Dosage: 160/4.5 MCG TWO PUFFS, BID
     Route: 055
  3. METOPROLOL [Suspect]
     Route: 048
  4. TAMSULOSIN HYDROCHLORIDE [Concomitant]
  5. LUMIGAN [Concomitant]
  6. ZOCOR [Concomitant]
     Route: 048
  7. SPIRIVA [Concomitant]
  8. ASPIRIN [Concomitant]

REACTIONS (2)
  - Dysphonia [Unknown]
  - Dry mouth [Unknown]
